FAERS Safety Report 9478745 (Version 1)
Quarter: 2013Q3

REPORT INFORMATION
  Report Type: Spontaneous
  Country: IR (occurrence: IR)
  Receive Date: 20130827
  Receipt Date: 20130827
  Transmission Date: 20140515
  Serious: Yes (Hospitalization)
  Sender: FDA-Public Use
  Company Number: IR-SANOFI-AVENTIS-2013SA085002

PATIENT
  Age: 25 Year
  Sex: Male

DRUGS (9)
  1. FLUOROURACIL [Suspect]
     Indication: COLON CANCER METASTATIC
     Dosage: FOLFIRI REGIMEN: CYCLE 1-5
     Route: 065
  2. FLUOROURACIL [Suspect]
     Indication: COLON CANCER METASTATIC
     Dosage: FOLFOX REGIMEN
     Route: 065
  3. FLUOROURACIL [Suspect]
     Indication: COLON CANCER METASTATIC
     Dosage: FOLFIRIREGIMEN
     Route: 065
  4. OXALIPLATIN [Suspect]
     Indication: COLON CANCER METASTATIC
     Route: 065
  5. FOLINIC ACID [Suspect]
     Indication: COLON CANCER METASTATIC
     Route: 065
  6. FOLINIC ACID [Suspect]
     Indication: COLON CANCER METASTATIC
     Dosage: FOLFIRI : CYCLE 1-5
     Route: 065
  7. FOLINIC ACID [Suspect]
     Indication: COLON CANCER METASTATIC
     Route: 065
  8. IRINOTECAN [Suspect]
     Indication: COLON CANCER METASTATIC
     Dosage: CYCLE 1-5
     Route: 065
  9. IRINOTECAN [Suspect]
     Indication: COLON CANCER METASTATIC
     Route: 065

REACTIONS (3)
  - Chronic myeloid leukaemia [Recovering/Resolving]
  - Abdominal discomfort [Recovering/Resolving]
  - Leukocytosis [Recovering/Resolving]
